FAERS Safety Report 8169503-0 (Version None)
Quarter: 2012Q1

REPORT INFORMATION
  Report Type: 
  Country: None (occurrence: None)
  Receive Date: 20120104
  Receipt Date: 20111130
  Transmission Date: 20120608
  Serious: No
  Sender: FDA-Public Use
  Company Number: 2011HGS-002884

PATIENT
  Age: 40 Year
  Sex: Female
  Weight: 59.4212 kg

DRUGS (10)
  1. PREDNISONE [Concomitant]
  2. FLEXERIL (CYCLOBENZAPRINE HYDROCHLORIDE) (CYCLOBENZAPRINE HYDROCHLORID [Concomitant]
  3. ZOLOFT [Concomitant]
  4. BENLYSTA [Suspect]
     Indication: SYSTEMIC LUPUS ERYTHEMATOSUS
     Dosage: 600 MG, 1 IN 28 D, INTRAVENOUS DRIP
     Route: 041
     Dates: start: 20110804
  5. PLAQUENIL (HYDROXYCHLOROQUINE SULFATE) (HYDROXYCHLOROQUINE SULFATE) (H [Concomitant]
  6. RELPAX (ELETRIPTAN HYDROBROMIDE) (ELETRIPTAN HYDROBROMIDE) [Concomitant]
  7. TRAMADOL HCL [Concomitant]
  8. MOBIC [Concomitant]
  9. ACIPHEX (RABEPRAZOLE SODIUM) (RABEPRAZOLE SODIUM) [Concomitant]
  10. ATELVIA (RISEDRONATE SODIUM) (RISEDRONATE SODIUM) [Concomitant]

REACTIONS (1)
  - FATIGUE [None]
